FAERS Safety Report 5229625-0 (Version None)
Quarter: 2007Q1

REPORT INFORMATION
  Report Type: 
  Country: None (occurrence: None)
  Receive Date: 20070205
  Receipt Date: 20070126
  Transmission Date: 20070707
  Serious: Yes (Hospitalization)
  Sender: FDA-Public Use
  Company Number: JP-ABBOTT-04P-087-0256455-00

PATIENT
  Sex: Male

DRUGS (22)
  1. KALETRA [Suspect]
     Indication: HIV INFECTION
     Route: 048
     Dates: start: 20021123, end: 20021126
  2. KALETRA [Suspect]
     Route: 048
     Dates: start: 20040206
  3. DIDANOSINE [Suspect]
     Indication: HIV INFECTION
     Route: 048
     Dates: start: 20021123, end: 20040205
  4. ABACAVIR [Suspect]
     Indication: HIV INFECTION
     Route: 048
     Dates: start: 20021123, end: 20040205
  5. EFAVIRENZ [Suspect]
     Indication: HIV INFECTION
     Route: 048
     Dates: start: 20021127, end: 20040205
  6. STAVUDINE [Suspect]
     Indication: HIV INFECTION
     Route: 048
     Dates: start: 20040206, end: 20040506
  7. STAVUDINE [Suspect]
     Route: 048
     Dates: start: 20040507, end: 20050106
  8. TENOFOVIR [Suspect]
     Indication: HIV INFECTION
     Route: 048
     Dates: start: 20050107
  9. ZIDOVUDINE [Suspect]
     Indication: HIV INFECTION
     Route: 048
     Dates: start: 20050117, end: 20051007
  10. LAMIVUDINE [Concomitant]
     Indication: HIV INFECTION
     Route: 048
     Dates: start: 20040206
  11. GANCICLOVIR [Concomitant]
     Indication: CYTOMEGALOVIRUS INFECTION
     Route: 042
     Dates: start: 20021021, end: 20021105
  12. GANCICLOVIR [Concomitant]
     Indication: OESOPHAGITIS
     Route: 048
     Dates: start: 20021203, end: 20030331
  13. GANCICLOVIR [Concomitant]
     Dates: start: 20030404, end: 20040206
  14. AZITHROMYCIN DIHYDRATE [Concomitant]
     Indication: MYCOBACTERIUM AVIUM COMPLEX INFECTION
     Route: 048
     Dates: start: 20021108, end: 20030606
  15. FOSCARNET SODIUM HYDRATE [Concomitant]
     Indication: CYTOMEGALOVIRUS INFECTION
     Route: 042
     Dates: start: 20021106, end: 20021110
  16. FOSCARNET SODIUM HYDRATE [Concomitant]
     Indication: OESOPHAGITIS
     Route: 042
     Dates: start: 20021111, end: 20021118
  17. BACTRIM [Concomitant]
     Indication: ANTIFUNGAL PROPHYLAXIS
     Route: 048
     Dates: start: 20021011, end: 20021022
  18. FILGRASTIM [Concomitant]
     Indication: WHITE BLOOD CELL COUNT DECREASED
     Dates: start: 20021105, end: 20021108
  19. PENTAMIDINE ISETHIONATE [Concomitant]
     Indication: ANTIFUNGAL PROPHYLAXIS
     Route: 055
     Dates: start: 20021106, end: 20040604
  20. CEFMETAZOLE SODIUM [Concomitant]
     Indication: APPENDICITIS
     Dates: start: 20030311, end: 20030314
  21. FLUCONAZOLE [Concomitant]
     Indication: ORAL CANDIDIASIS
     Dates: start: 20021008, end: 20021012
  22. FLUCONAZOLE [Concomitant]
     Indication: OESOPHAGEAL CANDIDIASIS
     Dates: start: 20021111, end: 20021117

REACTIONS (9)
  - APPENDICITIS [None]
  - BLOOD AMYLASE INCREASED [None]
  - BLOOD TRIGLYCERIDES INCREASED [None]
  - BRADYCARDIA [None]
  - DIZZINESS [None]
  - FEELING COLD [None]
  - GAMMA-GLUTAMYLTRANSFERASE INCREASED [None]
  - HERPES ZOSTER [None]
  - WEIGHT DECREASED [None]
